FAERS Safety Report 22987482 (Version 5)
Quarter: 2025Q1

REPORT INFORMATION
  Report Type: Spontaneous
  Country: US (occurrence: US)
  Receive Date: 20230926
  Receipt Date: 20250106
  Transmission Date: 20250408
  Serious: Yes (Other)
  Sender: BIOMARIN
  Company Number: US-SA-2023SA283503

PATIENT

DRUGS (5)
  1. ALDURAZYME [Suspect]
     Active Substance: LARONIDASE
     Indication: Mucopolysaccharidosis II
     Dosage: 23.2 MG, QW
     Route: 042
     Dates: start: 201906
  2. ALDURAZYME [Suspect]
     Active Substance: LARONIDASE
     Dosage: 45 ML, QW
     Route: 042
  3. ALDURAZYME [Suspect]
     Active Substance: LARONIDASE
     Dosage: 26.1 MG, QW
     Route: 042
  4. DIPHENHYDRAMINE [Concomitant]
     Active Substance: DIPHENHYDRAMINE
     Indication: Product used for unknown indication
  5. DIPHENHYDRAMINE [Concomitant]
     Active Substance: DIPHENHYDRAMINE

REACTIONS (9)
  - Cataract [Unknown]
  - Chills [Unknown]
  - Tremor [Unknown]
  - Weight increased [Unknown]
  - Skin odour abnormal [Unknown]
  - Post procedural complication [Unknown]
  - Central venous catheterisation [Unknown]
  - Vomiting [Unknown]
  - Product use in unapproved indication [Unknown]

NARRATIVE: CASE EVENT DATE: 20190601
